FAERS Safety Report 8459760 (Version 4)
Quarter: 2014Q2

REPORT INFORMATION
  Report Type: Spontaneous
  Country: US (occurrence: US)
  Receive Date: 20120314
  Receipt Date: 20140619
  Transmission Date: 20141212
  Serious: No
  Sender: FDA-Public Use
  Company Number: US-ASTRAZENECA-2011SE53589

PATIENT
  Age: 52 Year
  Sex: Female

DRUGS (1)
  1. TOPROL XL [Suspect]
     Indication: FAMILIAL RISK FACTOR
     Route: 048

REACTIONS (8)
  - Hypersensitivity [Unknown]
  - Nasal congestion [Unknown]
  - Dysphonia [Unknown]
  - Cardiac disorder [Unknown]
  - Adverse event [Unknown]
  - Thyroid disorder [Unknown]
  - Peripheral swelling [Unknown]
  - Drug dose omission [Unknown]
